FAERS Safety Report 13064539 (Version 1)
Quarter: 2016Q4

REPORT INFORMATION
  Report Type: Spontaneous
  Country: US (occurrence: US)
  Receive Date: 20161223
  Receipt Date: 20161223
  Transmission Date: 20170207
  Serious: Yes (Hospitalization)
  Sender: FDA-Public Use
  Company Number: None

PATIENT
  Sex: Male

DRUGS (1)
  1. XELJANZ [Suspect]
     Active Substance: TOFACITINIB CITRATE
     Indication: MALAISE
     Route: 048
     Dates: start: 20160726

REACTIONS (4)
  - Underdose [None]
  - Urinary tract infection [None]
  - Nephrolithiasis [None]
  - Liver injury [None]
